FAERS Safety Report 20818821 (Version 1)
Quarter: 2022Q2

REPORT INFORMATION
  Report Type: Spontaneous
  Country: US (occurrence: None)
  Receive Date: 20220511
  Receipt Date: 20220511
  Transmission Date: 20220721
  Serious: Yes (Other)
  Sender: FDA-Public Use
  Company Number: None

PATIENT
  Age: 55 Year
  Sex: Female
  Weight: 108 kg

DRUGS (1)
  1. GAMUNEX [Suspect]
     Active Substance: HUMAN IMMUNOGLOBULIN G
     Indication: Subacute inflammatory demyelinating polyneuropathy
     Dosage: FREQUENCY : DAILY;?
     Route: 042
     Dates: start: 20220511, end: 20220511

REACTIONS (5)
  - Urticaria [None]
  - Ear swelling [None]
  - Throat tightness [None]
  - Wheezing [None]
  - Infusion related reaction [None]

NARRATIVE: CASE EVENT DATE: 20220511
